FAERS Safety Report 9252701 (Version 3)
Quarter: 2013Q2

REPORT INFORMATION
  Report Type: Spontaneous
  Country: CN (occurrence: CN)
  Receive Date: 20130424
  Receipt Date: 20130603
  Transmission Date: 20140414
  Serious: Yes (Hospitalization)
  Sender: FDA-Public Use
  Company Number: CN-GLAXOSMITHKLINE-B0886572A

PATIENT
  Sex: Male

DRUGS (4)
  1. HEPTODIN [Suspect]
     Indication: CHRONIC HEPATITIS B
     Dosage: 1TAB PER DAY
     Route: 048
     Dates: start: 2009, end: 2013
  2. HEPSERA [Suspect]
     Indication: CHRONIC HEPATITIS B
     Dosage: 1TAB PER DAY
     Route: 048
  3. PROPRANOLOL HYDROCHLORIDE [Concomitant]
     Dosage: 1TAB PER DAY
     Route: 048
  4. ADEFOVIR DIPIVOXIL [Concomitant]
     Route: 048
     Dates: start: 2011

REACTIONS (7)
  - Plasma cell myeloma [Unknown]
  - Abasia [Unknown]
  - Spondylitis [Unknown]
  - Thrombocytopenia [Unknown]
  - Spleen disorder [Unknown]
  - Pain [Not Recovered/Not Resolved]
  - Chest pain [Not Recovered/Not Resolved]
